FAERS Safety Report 4906718-6 (Version None)
Quarter: 2006Q1

REPORT INFORMATION
  Report Type: 
  Country: None (occurrence: None)
  Receive Date: 20060207
  Receipt Date: 20060120
  Transmission Date: 20060701
  Serious: Yes (Other)
  Sender: FDA-Public Use
  Company Number: EWC050544132

PATIENT
  Age: 44 Year
  Sex: Female

DRUGS (5)
  1. CYMBALTA [Suspect]
     Indication: MAJOR DEPRESSION
     Dosage: 60 MG, DAILY (1/D), ORAL
     Route: 048
     Dates: start: 20050101, end: 20050501
  2. CILIFT (CITALOPRAM) [Concomitant]
  3. LAMICTIN (LAMOTRIGINE) [Concomitant]
  4. BROMAZEPAM (BROMAZEPAM) [Concomitant]
  5. BUSPAR [Concomitant]

REACTIONS (3)
  - FOOD CRAVING [None]
  - SYSTEMIC LUPUS ERYTHEMATOSUS [None]
  - WEIGHT INCREASED [None]
